FAERS Safety Report 9884880 (Version 2)
Quarter: 2014Q1

REPORT INFORMATION
  Report Type: Spontaneous
  Country: US (occurrence: US)
  Receive Date: 20140210
  Receipt Date: 20140306
  Transmission Date: 20141002
  Serious: Yes (Other)
  Sender: FDA-Public Use
  Company Number: US-BAYER-2014-019089

PATIENT
  Age: 18 Year
  Sex: Female
  Weight: 43.08 kg

DRUGS (1)
  1. MIRENA [Suspect]
     Indication: CONTRACEPTION
     Dosage: 20 MCG/24HR, CONT
     Route: 015
     Dates: start: 20100729, end: 20121107

REACTIONS (11)
  - Uterine perforation [None]
  - Device difficult to use [None]
  - Injury [None]
  - Pain [None]
  - Emotional distress [None]
  - Ovarian cyst [None]
  - Infection [None]
  - Scar [None]
  - Depression [None]
  - Anxiety [None]
  - Device issue [None]
